FAERS Safety Report 8189243-1 (Version None)
Quarter: 2012Q1

REPORT INFORMATION
  Report Type: 
  Country: None (occurrence: None)
  Receive Date: 20120306
  Receipt Date: 20120306
  Transmission Date: 20120608
  Serious: Yes (Congenital Anomaly)
  Sender: FDA-Public Use
  Company Number: None

PATIENT
  Sex: Female
  Weight: 57 kg

DRUGS (1)
  1. RHO(D) IMMUNE GLOBULIN NOS [Suspect]
     Indication: ABORTION SPONTANEOUS
     Dosage: 300 MCG (1500 IU) ONE TIME DOSE INTRAMUSCULAR INJECTION
     Route: 030
     Dates: start: 20111212

REACTIONS (2)
  - MATERNAL EXPOSURE DURING PREGNANCY [None]
  - ABORTION SPONTANEOUS INCOMPLETE [None]
